FAERS Safety Report 22542019 (Version 1)
Quarter: 2023Q2

REPORT INFORMATION
  Report Type: Spontaneous
  Country: JP (occurrence: None)
  Receive Date: 20230609
  Receipt Date: 20230609
  Transmission Date: 20230721
  Serious: Yes (Hospitalization)
  Sender: FDA-Public Use
  Company Number: 2023A131057

PATIENT
  Age: 67 Year
  Sex: Male

DRUGS (10)
  1. IMFINZI [Suspect]
     Active Substance: DURVALUMAB
     Indication: Hepatocellular carcinoma
     Dosage: DOSE UNKNOWN
     Route: 042
     Dates: start: 20230418
  2. IMJUDO [Suspect]
     Active Substance: TREMELIMUMAB-ACTL
     Indication: Hepatocellular carcinoma
     Dosage: DOSE UNKNOWN
     Route: 042
     Dates: start: 20230418
  3. NUTRITION FOR HEPATIC INSUFFISIENCY [Concomitant]
     Dosage: DOSE UNKNOWN
     Route: 048
  4. ENTECAVIR HYDRATE [Concomitant]
     Dosage: DOSE UNKNOWN
     Route: 048
     Dates: start: 20120530
  5. ZINC ACETATE HYDRATE [Concomitant]
     Dosage: DOSE UNKNOWN
     Route: 048
  6. OMEGA-3-ACID ETHYL ESTERS [Concomitant]
     Active Substance: OMEGA-3-ACID ETHYL ESTERS
     Dosage: DOSE UNKNOWN
     Route: 048
  7. PITAVASTATIN CALCIUM [Concomitant]
     Active Substance: PITAVASTATIN CALCIUM
     Dosage: DOSE UNKNOWN
     Route: 048
  8. ESOMEPRAZOLE [Concomitant]
     Active Substance: ESOMEPRAZOLE
     Dosage: DOSE UNKNOWN
     Route: 048
  9. TENELIGLIPTIN HYDROBROMIDE HYDRATE [Concomitant]
     Active Substance: TENELIGLIPTIN HYDROBROMIDE HYDRATE
     Dosage: DOSE UNKNOWN
     Route: 048
  10. CALCIUM CARBONATE [Concomitant]
     Active Substance: CALCIUM CARBONATE
     Dosage: DOSE UNKNOWN
     Route: 048

REACTIONS (2)
  - Pancreatic enzymes increased [Recovering/Resolving]
  - Immune-mediated adverse reaction [Unknown]

NARRATIVE: CASE EVENT DATE: 20230509
